FAERS Safety Report 7555056-4 (Version None)
Quarter: 2011Q2

REPORT INFORMATION
  Report Type: 
  Country: None (occurrence: None)
  Receive Date: 20110617
  Receipt Date: 20110607
  Transmission Date: 20111010
  Serious: Yes (Hospitalization)
  Sender: FDA-Public Use
  Company Number: PHHY2011KR49794

PATIENT
  Sex: Male

DRUGS (6)
  1. VENLAFAXINE [Suspect]
     Dosage: 300 MG, UNK
  2. VENLAFAXINE [Suspect]
     Dosage: 150 MG, UNK
  3. VENLAFAXINE [Suspect]
     Indication: DEPRESSION
     Dosage: 150 MG, UNK
  4. VENLAFAXINE [Suspect]
     Dosage: 1500 MG, A DAY
  5. PAROXETINE HCL [Suspect]
     Indication: DEPRESSION
  6. BUPROPION HCL [Suspect]
     Indication: DEPRESSION

REACTIONS (24)
  - ABDOMINAL PAIN UPPER [None]
  - INSOMNIA [None]
  - NAUSEA [None]
  - DRUG INEFFECTIVE [None]
  - DEPRESSION [None]
  - BLOOD PRESSURE INCREASED [None]
  - DRUG DEPENDENCE [None]
  - TACHYCARDIA [None]
  - ASTHENIA [None]
  - SUICIDE ATTEMPT [None]
  - VERTIGO [None]
  - PARAESTHESIA [None]
  - CHEST DISCOMFORT [None]
  - DYSPNOEA [None]
  - HYPERHIDROSIS [None]
  - DIZZINESS [None]
  - DRUG WITHDRAWAL SYNDROME [None]
  - TINNITUS [None]
  - DEPRESSED MOOD [None]
  - IMPULSIVE BEHAVIOUR [None]
  - AGITATION [None]
  - TREMOR [None]
  - DECREASED APPETITE [None]
  - FEAR [None]
